FAERS Safety Report 6168980-4 (Version None)
Quarter: 2009Q2

REPORT INFORMATION
  Report Type: 
  Country: None (occurrence: None)
  Receive Date: 20090427
  Receipt Date: 20090422
  Transmission Date: 20091009
  Serious: Yes (Hospitalization)
  Sender: FDA-Public Use
  Company Number: JP-AVENTIS-200911194JP

PATIENT
  Age: 65 Year
  Sex: Male

DRUGS (2)
  1. AMARYL [Suspect]
     Indication: TYPE 2 DIABETES MELLITUS
     Route: 048
     Dates: start: 20081026
  2. ORAL BLOOD GLUCOSE LOWERING DRUGS [Suspect]
     Indication: TYPE 2 DIABETES MELLITUS
     Route: 048
     Dates: start: 20090120, end: 20090410

REACTIONS (1)
  - LUNG NEOPLASM MALIGNANT [None]
